FAERS Safety Report 12040198 (Version 4)
Quarter: 2017Q2

REPORT INFORMATION
  Report Type: Spontaneous
  Country: BR (occurrence: BR)
  Receive Date: 20160208
  Receipt Date: 20170509
  Transmission Date: 20170829
  Serious: Yes (Other)
  Sender: FDA-Public Use
  Company Number: BR-JNJFOC-20160204369

PATIENT
  Age: 34 Year
  Sex: Female
  Weight: 82 kg

DRUGS (7)
  1. HYDROCHLOROTHIAZIDE. [Concomitant]
     Active Substance: HYDROCHLOROTHIAZIDE
     Route: 065
  2. DIPIRONE [Concomitant]
     Active Substance: METAMIZOLE SODIUM
     Route: 065
  3. LOSARTAN. [Concomitant]
     Active Substance: LOSARTAN
     Route: 065
  4. ESOMEPRAZOLE [Concomitant]
     Active Substance: ESOMEPRAZOLE
     Route: 065
  5. LEFLUNOMIDE. [Concomitant]
     Active Substance: LEFLUNOMIDE
     Route: 065
  6. SIMPONI [Suspect]
     Active Substance: GOLIMUMAB
     Indication: RHEUMATOID ARTHRITIS
     Route: 058
     Dates: start: 20151004, end: 201702
  7. METHOTREXATE. [Concomitant]
     Active Substance: METHOTREXATE
     Route: 065

REACTIONS (11)
  - Psoriasis [Unknown]
  - Asthenia [Unknown]
  - Arthralgia [Unknown]
  - Eye disorder [Unknown]
  - Fatigue [Unknown]
  - Headache [Unknown]
  - Irritability [Unknown]
  - Back pain [Unknown]
  - Hyperhidrosis [Unknown]
  - Abdominal pain [Unknown]
  - Sterilisation [Unknown]

NARRATIVE: CASE EVENT DATE: 201510
